FAERS Safety Report 15743696 (Version 1)
Quarter: 2018Q4

REPORT INFORMATION
  Report Type: Spontaneous
  Country: PR (occurrence: PR)
  Receive Date: 20181220
  Receipt Date: 20181220
  Transmission Date: 20190205
  Serious: No
  Sender: FDA-Public Use
  Company Number: PR-PFIZER INC-2018522062

PATIENT
  Age: 14 Year
  Sex: Male
  Weight: 31.8 kg

DRUGS (1)
  1. GENOTROPIN [Suspect]
     Active Substance: SOMATROPIN
     Dosage: 1 MG, 1X/DAY (ONCE A DAY AT NIGHT)

REACTIONS (1)
  - Testicular pain [Not Recovered/Not Resolved]
